FAERS Safety Report 8359923-3 (Version None)
Quarter: 2012Q2

REPORT INFORMATION
  Report Type: 
  Country: None (occurrence: None)
  Receive Date: 20120515
  Receipt Date: 20120510
  Transmission Date: 20120825
  Serious: Yes (Other)
  Sender: FDA-Public Use
  Company Number: US-PFIZER INC-2012114737

PATIENT
  Sex: Male
  Weight: 74.38 kg

DRUGS (9)
  1. LOSARTAN [Concomitant]
     Dosage: 50 MG, 1X/DAY
  2. FOLIC ACID [Concomitant]
     Dosage: 400 MCG, UNK
  3. OMEGA-3 OIL [Concomitant]
     Dosage: UNK
  4. LEXAPRO [Concomitant]
     Dosage: 20 MG, 1X/DAY
  5. LIPITOR [Suspect]
     Indication: BLOOD CHOLESTEROL INCREASED
     Dosage: 80 MG, ONCE A DAY
     Route: 048
  6. ASPIRIN [Concomitant]
     Dosage: 325 MG, 1X/DAY
  7. PLAVIX [Concomitant]
     Dosage: 75 MG, UNK
  8. METOPROLOL [Concomitant]
     Dosage: 25 MG, 2X/DAY
  9. ZETIA [Concomitant]
     Dosage: 10 MG, UNK

REACTIONS (5)
  - CORONARY ARTERY OCCLUSION [None]
  - GAIT DISTURBANCE [None]
  - DIZZINESS [None]
  - DYSPNOEA [None]
  - BLOOD TESTOSTERONE DECREASED [None]
